FAERS Safety Report 5685003-1 (Version None)
Quarter: 2008Q1

REPORT INFORMATION
  Report Type: 
  Country: None (occurrence: None)
  Receive Date: 20080328
  Receipt Date: 19970715
  Transmission Date: 20080703
  Serious: Yes (Death)
  Sender: FDA-Public Use
  Company Number: US-ROCHE-77877

PATIENT
  Age: 13 Year
  Sex: Male
  Weight: 44 kg

DRUGS (20)
  1. CELLCEPT [Suspect]
     Route: 065
     Dates: start: 19970318, end: 19970512
  2. ALLOPURINOL [Concomitant]
     Route: 065
  3. AMLODIPINE BESYLATE [Concomitant]
     Route: 065
  4. CALCIUM CARBONATE [Concomitant]
     Route: 065
  5. CLONIDINE [Concomitant]
     Route: 065
  6. ESTRADERM [Concomitant]
     Route: 065
  7. FLUCONAZOLE [Concomitant]
     Route: 065
  8. GANCICLOVIR [Concomitant]
     Route: 065
  9. LASIX [Concomitant]
     Route: 065
  10. SYNTHROID [Concomitant]
     Route: 065
  11. REGLAN [Concomitant]
     Route: 065
  12. LOPRESSOR [Concomitant]
     Route: 065
  13. METOLAZONE [Concomitant]
     Route: 065
  14. PHENOBARBITAL TAB [Concomitant]
     Route: 065
  15. PREDNISONE TAB [Concomitant]
     Route: 065
  16. ZANTAC [Concomitant]
     Route: 065
  17. ZOLOFT [Concomitant]
     Route: 065
  18. CARAFATE [Concomitant]
     Route: 065
  19. CEFTAZIDIME SODIUM [Concomitant]
     Route: 065
  20. NAFCILLIN SODIUM [Concomitant]
     Route: 065

REACTIONS (5)
  - BLOOD ALKALINE PHOSPHATASE INCREASED [None]
  - BLOOD BILIRUBIN INCREASED [None]
  - DEATH [None]
  - GAMMA-GLUTAMYLTRANSFERASE INCREASED [None]
  - PYREXIA [None]
